FAERS Safety Report 21115168 (Version 3)
Quarter: 2023Q1

REPORT INFORMATION
  Report Type: Spontaneous
  Country: US (occurrence: US)
  Receive Date: 20220721
  Receipt Date: 20230110
  Transmission Date: 20230417
  Serious: No
  Sender: FDA-Public Use
  Company Number: US-PFIZER INC-PV202200025477

PATIENT
  Age: 41 Year
  Sex: Male

DRUGS (4)
  1. INLYTA [Suspect]
     Active Substance: AXITINIB
     Dosage: 10 MG
  2. INLYTA [Suspect]
     Active Substance: AXITINIB
     Dosage: 4 MG
  3. INLYTA [Suspect]
     Active Substance: AXITINIB
     Dosage: 5 MG, 1X/DAY (TAKE 2 (1MG) TABLETS IN MORNING AND 3 (1MG) TABLETS AT NIGHT 5MG A DAY)
  4. INLYTA [Suspect]
     Active Substance: AXITINIB
     Dosage: 4 MG, DAILY(TAKING 4MG TOTAL A DAY)

REACTIONS (6)
  - Diarrhoea [Unknown]
  - Rash [Unknown]
  - Pruritus [Unknown]
  - Headache [Unknown]
  - Nausea [Unknown]
  - Off label use [Unknown]
